FAERS Safety Report 4941883-6 (Version None)
Quarter: 2006Q1

REPORT INFORMATION
  Report Type: 
  Country: None (occurrence: None)
  Receive Date: 20060308
  Receipt Date: 20060221
  Transmission Date: 20060701
  Serious: Yes (Hospitalization, Other)
  Sender: FDA-Public Use
  Company Number: WAES 0602USA05265

PATIENT
  Sex: Female
  Weight: 86.1834 kg

DRUGS (2)
  1. VIOXX [Suspect]
     Indication: ARTHRALGIA
     Dosage: 12.5 TO 25 MG/DAILY/PO
     Route: 048
     Dates: start: 20011001, end: 20031201
  2. VIOXX [Suspect]
     Indication: SCIATICA
     Dosage: 12.5 TO 25 MG/DAILY/PO
     Route: 048
     Dates: start: 20011001, end: 20031201

REACTIONS (22)
  - ANAEMIA [None]
  - ARTHRITIS [None]
  - BRADYCARDIA [None]
  - BREAST DISORDER [None]
  - BRONCHITIS [None]
  - BUNION [None]
  - CEREBROVASCULAR ACCIDENT [None]
  - DELIRIUM [None]
  - DEMENTIA [None]
  - FATIGUE [None]
  - GASTROINTESTINAL HAEMORRHAGE [None]
  - GASTROOESOPHAGEAL REFLUX DISEASE [None]
  - HEAT STROKE [None]
  - HYPERGLYCAEMIA [None]
  - HYPERLIPIDAEMIA [None]
  - HYPERTENSION [None]
  - HYPOTHYROIDISM [None]
  - ONYCHOMYCOSIS [None]
  - PNEUMONIA [None]
  - PNEUMONITIS [None]
  - TRANSIENT ISCHAEMIC ATTACK [None]
  - URINARY TRACT INFECTION [None]
